FAERS Safety Report 21585876 (Version 1)
Quarter: 2022Q4

REPORT INFORMATION
  Report Type: Report from Study
  Country: US (occurrence: US)
  Receive Date: 20221111
  Receipt Date: 20221111
  Transmission Date: 20230113
  Serious: No
  Sender: FDA-Public Use
  Company Number: US-002147023-NVSC2022US253557

PATIENT
  Sex: Female

DRUGS (3)
  1. GLATOPA [Suspect]
     Active Substance: GLATIRAMER ACETATE
     Indication: Product used for unknown indication
     Dosage: 40 MG, OTHER (3 TIMES PER WEEK)
     Route: 058
     Dates: start: 20221015
  2. GLATOPA [Suspect]
     Active Substance: GLATIRAMER ACETATE
     Dosage: UNK, SECOND INJECTION
     Route: 065
  3. GLATOPA [Suspect]
     Active Substance: GLATIRAMER ACETATE
     Dosage: UNK, THIRD INJECTION
     Route: 065

REACTIONS (3)
  - Injection site erythema [Unknown]
  - Injection site papule [Unknown]
  - Pruritus [Unknown]
